FAERS Safety Report 11310960 (Version 29)
Quarter: 2020Q1

REPORT INFORMATION
  Report Type: Report from Study
  Country: CA (occurrence: CA)
  Receive Date: 20150726
  Receipt Date: 20200205
  Transmission Date: 20200409
  Serious: Yes (Life-Threatening, Hospitalization, Other)
  Sender: FDA-Public Use
  Company Number: CA-ROCHE-1610105

PATIENT
  Age: 47 Year
  Sex: Female
  Weight: 58 kg

DRUGS (25)
  1. CELLCEPT [Suspect]
     Active Substance: MYCOPHENOLATE MOFETIL\MYCOPHENOLATE MOFETIL HYDROCHLORIDE
     Route: 065
     Dates: start: 20150529, end: 20150624
  2. HYDROXYCHLOROQUINE [Concomitant]
     Active Substance: HYDROXYCHLOROQUINE
  3. TYLENOL [Concomitant]
     Active Substance: ACETAMINOPHEN
  4. IPRATROPIUM [Concomitant]
     Active Substance: IPRATROPIUM
     Dosage: 20 MCG
     Route: 065
     Dates: start: 20170719
  5. MEPRON [Concomitant]
     Active Substance: ATOVAQUONE
     Route: 065
     Dates: start: 20191211, end: 201912
  6. LANSOPRAZOLE. [Concomitant]
     Active Substance: LANSOPRAZOLE
  7. MONTELUKAST [Concomitant]
     Active Substance: MONTELUKAST SODIUM
  8. RITUXAN [Suspect]
     Active Substance: RITUXIMAB
     Indication: PARANEOPLASTIC PEMPHIGUS
     Dosage: PREVIOUS DOSE WAS ON 03/AUG/2017
     Route: 042
     Dates: start: 20150914
  9. BISOPROLOL [Concomitant]
     Active Substance: BISOPROLOL
  10. THALIDOMIDE [Concomitant]
     Active Substance: THALIDOMIDE
  11. PREDNISOLONE. [Concomitant]
     Active Substance: PREDNISOLONE
  12. CELLCEPT [Suspect]
     Active Substance: MYCOPHENOLATE MOFETIL\MYCOPHENOLATE MOFETIL HYDROCHLORIDE
     Route: 065
  13. SULFAMETHOXAZOLE/TRIMETHOPRIM [Suspect]
     Active Substance: SULFAMETHOXAZOLE\TRIMETHOPRIM
     Indication: PNEUMONIA
     Route: 065
     Dates: start: 2019, end: 20191210
  14. DIPHENHYDRAMINE HCL [Concomitant]
     Active Substance: DIPHENHYDRAMINE HYDROCHLORIDE
     Indication: PREMEDICATION
     Dosage: VIA G TUBE
     Route: 065
     Dates: start: 20150914, end: 20150928
  15. QUETIAPINE. [Concomitant]
     Active Substance: QUETIAPINE
  16. RISEDRONATE [Concomitant]
     Active Substance: RISEDRONATE SODIUM
  17. ACETAMINOPHEN. [Concomitant]
     Active Substance: ACETAMINOPHEN
     Route: 048
     Dates: start: 20160404
  18. METHYLPREDNISOLONE. [Concomitant]
     Active Substance: METHYLPREDNISOLONE
     Indication: PREMEDICATION
     Route: 042
     Dates: start: 20150914
  19. PREDNISONE. [Suspect]
     Active Substance: PREDNISONE
     Indication: PEMPHIGUS
     Route: 065
  20. PREDNISONE. [Suspect]
     Active Substance: PREDNISONE
     Route: 065
  21. FLUTICASONE;SALMETEROL [Concomitant]
     Active Substance: FLUTICASONE PROPIONATE\SALMETEROL XINAFOATE
  22. ADVAIR HFA [Concomitant]
     Active Substance: FLUTICASONE PROPIONATE\SALMETEROL XINAFOATE
     Dosage: 25/250MCG
     Route: 065
     Dates: start: 20170420
  23. CELLCEPT [Suspect]
     Active Substance: MYCOPHENOLATE MOFETIL\MYCOPHENOLATE MOFETIL HYDROCHLORIDE
     Indication: PEMPHIGUS
     Route: 065
  24. DIPHENHYDRAMINE HCL [Concomitant]
     Active Substance: DIPHENHYDRAMINE HYDROCHLORIDE
     Route: 048
     Dates: start: 20160404
  25. ACETAMINOPHEN. [Concomitant]
     Active Substance: ACETAMINOPHEN
     Indication: PREMEDICATION
     Dosage: VIA G TUBE
     Route: 065
     Dates: start: 20150914, end: 20150928

REACTIONS (27)
  - Pneumonia [Recovered/Resolved]
  - Respiratory rate increased [Unknown]
  - Heart rate increased [Unknown]
  - Dizziness [Unknown]
  - Blood pressure diastolic decreased [Unknown]
  - Pulmonary sepsis [Recovered/Resolved]
  - Hypotension [Unknown]
  - Hyperhidrosis [Unknown]
  - Nausea [Unknown]
  - Immune system disorder [Unknown]
  - Cough [Unknown]
  - Pemphigus [Unknown]
  - Blood pressure fluctuation [Unknown]
  - Pemphigus [Not Recovered/Not Resolved]
  - Oxygen saturation decreased [Unknown]
  - Dizziness [Recovered/Resolved]
  - Product use in unapproved indication [Unknown]
  - Pneumonia [Recovered/Resolved]
  - Heart rate increased [Unknown]
  - Dyspnoea exertional [Not Recovered/Not Resolved]
  - Treatment failure [Unknown]
  - Staphylococcal infection [Not Recovered/Not Resolved]
  - Hypotension [Unknown]
  - Dyspnoea [Unknown]
  - Mouth ulceration [Not Recovered/Not Resolved]
  - Off label use [Unknown]
  - Weight increased [Unknown]

NARRATIVE: CASE EVENT DATE: 20150914
